FAERS Safety Report 4981451-3 (Version None)
Quarter: 2006Q2

REPORT INFORMATION
  Report Type: 
  Country: None (occurrence: None)
  Receive Date: 20060419
  Receipt Date: 20060321
  Transmission Date: 20061013
  Serious: Yes (Death)
  Sender: FDA-Public Use
  Company Number: 2006-US-00624

PATIENT
  Age: 79 Year
  Sex: Female

DRUGS (1)
  1. CLOZAPINE [Suspect]
     Indication: SCHIZOPHRENIA
     Dosage: 150 MG, BID, ORAL
     Route: 048
     Dates: start: 20000901, end: 20060102

REACTIONS (1)
  - PNEUMONIA ASPIRATION [None]
